FAERS Safety Report 21362641 (Version 1)
Quarter: 2022Q3

REPORT INFORMATION
  Report Type: Spontaneous
  Country: DE (occurrence: DE)
  Receive Date: 20220922
  Receipt Date: 20220922
  Transmission Date: 20221027
  Serious: Yes (Hospitalization)
  Sender: FDA-Public Use
  Company Number: DE-ADRED-07537-04

PATIENT
  Age: 68 Year
  Sex: Male

DRUGS (13)
  1. BISOPROLOL [Suspect]
     Active Substance: BISOPROLOL
     Indication: Product used for unknown indication
     Dosage: 5 MILLIGRAM, TWO TIMES A DAY ( 1-0-1-0)
     Route: 048
  2. ACTRAPID [Concomitant]
     Active Substance: INSULIN HUMAN
     Indication: Product used for unknown indication
     Dosage: UNK (NACH SCHEMA)
     Route: 058
  3. ALLOPURINOL [Concomitant]
     Active Substance: ALLOPURINOL
     Indication: Product used for unknown indication
     Dosage: 100 MILLIGRAM, ONCE A DAY (0-0-1-0)
     Route: 048
  4. ARIPIPRAZOLE [Concomitant]
     Active Substance: ARIPIPRAZOLE
     Indication: Product used for unknown indication
     Dosage: 30 MILLIGRAM, ONCE A DAY (, 1-0-0-0)
     Route: 048
  5. BIPERIDEN-NEURAXPHARM [Concomitant]
     Indication: Product used for unknown indication
     Dosage: 4 MILLIGRAM, ONCE A DAY ( 1-0-0-0)
     Route: 048
  6. CETIRIZINE HYDROCHLORIDE [Concomitant]
     Active Substance: CETIRIZINE HYDROCHLORIDE
     Indication: Product used for unknown indication
     Dosage: 10 MILLIGRAM, ONCE A DAY ( 0-0-1-0)
     Route: 048
  7. LERCANIDIPINE [Concomitant]
     Active Substance: LERCANIDIPINE
     Indication: Product used for unknown indication
     Dosage: 10 MILLIGRAM (, 1-0-1-0)
     Route: 048
  8. MOMETASON GLENMARK [Concomitant]
     Indication: Product used for unknown indication
     Dosage: UNK (1-0-0-0)
     Route: 062
  9. MELPERONE [Concomitant]
     Active Substance: MELPERONE
     Indication: Product used for unknown indication
     Dosage: 50 MILLIGRAM, ONCE A DAY (0-0-2-0)
     Route: 048
  10. MOXONIDINA [Concomitant]
     Indication: Product used for unknown indication
     Dosage: 0.2 MILLIGRAM (, 1-0-1-0)
     Route: 048
  11. RAMIPRIL [Concomitant]
     Active Substance: RAMIPRIL
     Indication: Product used for unknown indication
     Dosage: 5 MILLIGRAM (, 1-0-1-0)
     Route: 048
  12. TOUJEO [Concomitant]
     Active Substance: INSULIN GLARGINE
     Indication: Product used for unknown indication
     Dosage: UNK(20 IE  0-0-0-1)
     Route: 058
  13. TORSEMIDE [Concomitant]
     Active Substance: TORSEMIDE
     Indication: Product used for unknown indication
     Dosage: 50 MILLIGRAM, ONCE A DAY ( 1-0-0-0)

REACTIONS (5)
  - Confusional state [Unknown]
  - Inflammation [Unknown]
  - Pyrexia [Unknown]
  - Swelling [Unknown]
  - Tachypnoea [Unknown]
